FAERS Safety Report 19086258 (Version 7)
Quarter: 2021Q2

REPORT INFORMATION
  Report Type: Spontaneous
  Country: IT (occurrence: IT)
  Receive Date: 20210402
  Receipt Date: 20210518
  Transmission Date: 20210717
  Serious: Yes (Hospitalization, Other)
  Sender: FDA-Public Use
  Company Number: NVSC2021IT072201

PATIENT
  Age: 93 Year
  Sex: Female

DRUGS (7)
  1. CLARITHROMYCIN. [Suspect]
     Active Substance: CLARITHROMYCIN
     Indication: ERYSIPELAS
     Dosage: UNK, 10 DAYS
     Route: 065
  2. WARFARIN SODIUM. [Interacting]
     Active Substance: WARFARIN SODIUM
     Indication: ATRIAL FIBRILLATION
     Dosage: 16.25 MG, QW
     Route: 065
  3. ISOPRENALINE [Concomitant]
     Active Substance: ISOPROTERENOL HYDROCHLORIDE
     Indication: BRADYCARDIA
     Dosage: UNK
     Route: 041
  4. FUROSEMIDE. [Concomitant]
     Active Substance: FUROSEMIDE
     Indication: CARDIAC FAILURE
     Dosage: UNK
     Route: 065
  5. WARFARIN SODIUM. [Interacting]
     Active Substance: WARFARIN SODIUM
     Indication: CARDIAC FAILURE
     Dosage: 17.5 MG, QW
     Route: 065
  6. AZITHROMYCIN DIHYDRATE. [Interacting]
     Active Substance: AZITHROMYCIN DIHYDRATE
     Indication: ERYSIPELAS
     Dosage: UNK, 10 DAYS
     Route: 065
  7. WARFARIN SODIUM. [Interacting]
     Active Substance: WARFARIN SODIUM
     Indication: ANTICOAGULANT THERAPY
     Dosage: 10 MG, QW
     Route: 065

REACTIONS (7)
  - Oedema peripheral [Unknown]
  - Oliguria [Unknown]
  - International normalised ratio increased [Recovered/Resolved]
  - Drug interaction [Unknown]
  - Bradycardia [Unknown]
  - Dyspnoea [Unknown]
  - Product use issue [Unknown]
